FAERS Safety Report 8347330-9 (Version None)
Quarter: 2012Q2

REPORT INFORMATION
  Report Type: 
  Country: None (occurrence: None)
  Receive Date: 20120509
  Receipt Date: 20120425
  Transmission Date: 20120825
  Serious: Yes (Other)
  Sender: FDA-Public Use
  Company Number: IN-ROCHE-1063373

PATIENT
  Sex: Female
  Weight: 60 kg

DRUGS (5)
  1. ZINETAC [Concomitant]
     Indication: ILL-DEFINED DISORDER
  2. INDAPAMIDE [Concomitant]
     Indication: UNEVALUABLE EVENT
     Route: 048
  3. INDOMETHACIN [Concomitant]
     Indication: ANALGESIC THERAPY
     Dosage: REPORTED NAME: INOCIN
     Route: 048
  4. ACTEMRA [Suspect]
     Indication: RHEUMATOID ARTHRITIS
     Route: 042
     Dates: start: 20120328, end: 20120425
  5. AMLOPRES AT [Concomitant]
     Indication: DEPRESSION
     Route: 048

REACTIONS (1)
  - ALLERGIC OEDEMA [None]
